FAERS Safety Report 14363996 (Version 2)
Quarter: 2018Q2

REPORT INFORMATION
  Report Type: Spontaneous
  Country: CA (occurrence: CA)
  Receive Date: 20180108
  Receipt Date: 20180502
  Transmission Date: 20180711
  Serious: Yes (Life-Threatening)
  Sender: FDA-Public Use
  Company Number: CA-OTSUKA-2018_000188

PATIENT
  Age: 75 Year
  Sex: Male
  Weight: 73 kg

DRUGS (4)
  1. ABILIFY [Suspect]
     Active Substance: ARIPIPRAZOLE
     Indication: ANXIETY
     Dosage: 1 MG, BID
     Route: 048
     Dates: start: 2016
  2. CLONAZEPAM. [Concomitant]
     Active Substance: CLONAZEPAM
     Indication: PRODUCT USED FOR UNKNOWN INDICATION
     Dosage: UNK
     Route: 065
  3. ABILIFY [Suspect]
     Active Substance: ARIPIPRAZOLE
     Indication: DEPRESSION
  4. ATIVAN [Concomitant]
     Active Substance: LORAZEPAM
     Indication: GASTROOESOPHAGEAL REFLUX DISEASE
     Dosage: UNK
     Route: 065

REACTIONS (7)
  - Chest discomfort [Not Recovered/Not Resolved]
  - Dyskinesia [Not Recovered/Not Resolved]
  - Muscle tightness [Unknown]
  - Off label use [Unknown]
  - Product use in unapproved indication [Unknown]
  - Feeling abnormal [Not Recovered/Not Resolved]
  - Weight decreased [Not Recovered/Not Resolved]
